FAERS Safety Report 6228388-X (Version None)
Quarter: 2009Q2

REPORT INFORMATION
  Report Type: 
  Country: None (occurrence: None)
  Receive Date: 20090612
  Receipt Date: 20090604
  Transmission Date: 20091009
  Serious: Yes (Other)
  Sender: FDA-Public Use
  Company Number: US-ELI_LILLY_AND_COMPANY-US200906001183

PATIENT
  Sex: Male

DRUGS (13)
  1. HUMALOG [Suspect]
  2. LANTUS [Concomitant]
  3. RANEXA [Concomitant]
  4. NEXIUM [Concomitant]
  5. ISOSORBIDE MN [Concomitant]
  6. LASIX [Concomitant]
  7. ALLOPURINOL [Concomitant]
  8. PLENDIL [Concomitant]
  9. NITROGLYCERIN [Concomitant]
  10. ASPIRIN [Concomitant]
  11. XALATAN [Concomitant]
  12. METOPROLOL SUCCINATE [Concomitant]
  13. EXJADE [Concomitant]

REACTIONS (3)
  - BLOOD IRON INCREASED [None]
  - INJECTION SITE HAEMATOMA [None]
  - INJECTION SITE PAIN [None]
